FAERS Safety Report 9910717 (Version 2)
Quarter: 2014Q1

REPORT INFORMATION
  Report Type: Spontaneous
  Country: US (occurrence: US)
  Receive Date: 20140219
  Receipt Date: 20140219
  Transmission Date: 20141002
  Serious: No
  Sender: FDA-Public Use
  Company Number: US-GILEAD-2012-0051836

PATIENT
  Sex: Male

DRUGS (2)
  1. LETAIRIS [Suspect]
     Indication: PULMONARY HYPERTENSION
     Dosage: 10 MG, UNK
     Route: 048
     Dates: start: 20120201
  2. TYVASO [Concomitant]
     Dosage: UNK
     Dates: start: 20120224

REACTIONS (5)
  - Hypotension [Unknown]
  - Occult blood positive [Unknown]
  - Oedema [Unknown]
  - Haemoglobin decreased [Unknown]
  - Fatigue [Unknown]
